FAERS Safety Report 21796352 (Version 1)
Quarter: 2022Q4

REPORT INFORMATION
  Report Type: Spontaneous
  Country: JP (occurrence: JP)
  Receive Date: 20221229
  Receipt Date: 20221229
  Transmission Date: 20230113
  Serious: Yes (Other)
  Sender: FDA-Public Use
  Company Number: JP-GSKJP-JP2022JPN089450

PATIENT
  Sex: Female
  Weight: 53.5 kg

DRUGS (16)
  1. BOTOX [Suspect]
     Active Substance: ONABOTULINUMTOXINA
     Indication: Dystonia
     Dosage: UNK, SINGLE, EVERY 2 MONTHS
  2. KAMIKIHITO [Concomitant]
     Indication: Dystonia
  3. HERBALS [Concomitant]
     Active Substance: HERBALS
     Route: 048
  4. HERBALS [Concomitant]
     Active Substance: HERBALS
     Indication: Dystonia
     Dosage: 7.5 G, QD
  5. ABILIFY [Concomitant]
     Active Substance: ARIPIPRAZOLE
  6. PYRETHIA [Concomitant]
     Active Substance: PROMETHAZINE HYDROCHLORIDE
  7. DESIREL [Concomitant]
  8. ROZEREM [Concomitant]
     Active Substance: RAMELTEON
  9. SODIUM PICOSULFATE [Concomitant]
     Active Substance: SODIUM PICOSULFATE
  10. PURSENNIDE [SENNOSIDE A+B CALCIUM] [Concomitant]
  11. MAGNESIUM OXIDE [Concomitant]
     Active Substance: MAGNESIUM OXIDE
  12. ARTANE [Concomitant]
     Active Substance: TRIHEXYPHENIDYL HYDROCHLORIDE
  13. DIPHENHYDRAMINE [Concomitant]
     Active Substance: DIPHENHYDRAMINE
     Dosage: UNK MG
  14. RESCULA [Concomitant]
     Active Substance: UNOPROSTONE ISOPROPYL
     Route: 047
  15. ALPHAGAN P [Concomitant]
     Active Substance: BRIMONIDINE TARTRATE
     Route: 047
  16. ASMANEX [Concomitant]
     Active Substance: MOMETASONE FUROATE
     Route: 055

REACTIONS (22)
  - Glaucoma [Unknown]
  - Chest discomfort [Recovered/Resolved]
  - Palpitations [Unknown]
  - Sleep deficit [Recovering/Resolving]
  - Sensation of foreign body [Recovered/Resolved]
  - Feeling cold [Unknown]
  - Peripheral coldness [Unknown]
  - Irritability [Unknown]
  - Asthenopia [Unknown]
  - Dry skin [Unknown]
  - Iron deficiency [Unknown]
  - Discomfort [Recovering/Resolving]
  - Product use in unapproved indication [Unknown]
  - Anxiety [Unknown]
  - Initial insomnia [Unknown]
  - Therapeutic response increased [Unknown]
  - Somnolence [Recovering/Resolving]
  - Panic disorder [Unknown]
  - Asthma [Unknown]
  - Hot flush [Unknown]
  - Malaise [Recovering/Resolving]
  - Fatigue [Unknown]
